FAERS Safety Report 19977372 (Version 1)
Quarter: 2021Q4

REPORT INFORMATION
  Report Type: Spontaneous
  Country: US (occurrence: US)
  Receive Date: 20211021
  Receipt Date: 20211021
  Transmission Date: 20220303
  Serious: Yes (Hospitalization)
  Sender: FDA-Public Use
  Company Number: US-PROCTER_AND_GAMBLE-PH21009560

PATIENT
  Sex: Male

DRUGS (1)
  1. VICKS VAPORUB [Suspect]
     Active Substance: CAMPHOR (SYNTHETIC)\EUCALYPTUS OIL\MENTHOL
     Dosage: UNK, WARMED... IN THE MICROWAVE
     Route: 061

REACTIONS (2)
  - Thermal burn [Unknown]
  - Wrong technique in product usage process [Unknown]
